FAERS Safety Report 8467191 (Version 7)
Quarter: 2013Q3

REPORT INFORMATION
  Report Type: Spontaneous
  Country: DK (occurrence: DK)
  Receive Date: 20120319
  Receipt Date: 20130906
  Transmission Date: 20140515
  Serious: Yes (Death, Life-Threatening, Hospitalization)
  Sender: FDA-Public Use
  Company Number: DK-B.I. PHARMACEUTICALS,INC./RIDGEFIELD-2012-SW-00221DB

PATIENT
  Age: 84 Year
  Sex: Male
  Weight: 80 kg

DRUGS (4)
  1. PRADAXA [Suspect]
     Indication: ATRIAL FIBRILLATION
     Dosage: 220 MG
     Route: 048
     Dates: start: 20120214, end: 20120217
  2. METFORMIN ^ACTAVIS^ [Concomitant]
     Indication: TYPE 2 DIABETES MELLITUS
  3. DIGOXIN [Concomitant]
  4. SELO-ZOK [Concomitant]

REACTIONS (5)
  - Cerebral haemorrhage [Fatal]
  - Renal failure acute [Fatal]
  - Sepsis [Fatal]
  - Haematuria [Not Recovered/Not Resolved]
  - Melaena [Not Recovered/Not Resolved]
